FAERS Safety Report 5273972-3 (Version None)
Quarter: 2007Q1

REPORT INFORMATION
  Report Type: 
  Country: None (occurrence: None)
  Receive Date: 20070323
  Receipt Date: 20070321
  Transmission Date: 20070707
  Serious: Yes (Other)
  Sender: FDA-Public Use
  Company Number: US-GLAXOSMITHKLINE-A0644073A

PATIENT
  Age: 20 Year
  Sex: Female

DRUGS (2)
  1. FLONASE [Suspect]
     Dosage: 2PUFF FOUR TIMES PER DAY
     Route: 045
     Dates: start: 20061001
  2. NO CONCURRENT MEDICATION [Concomitant]

REACTIONS (1)
  - VISUAL ACUITY REDUCED [None]
